FAERS Safety Report 7281358-5 (Version None)
Quarter: 2011Q1

REPORT INFORMATION
  Report Type: 
  Country: None (occurrence: None)
  Receive Date: 20110208
  Receipt Date: 20110204
  Transmission Date: 20110831
  Serious: Yes (Life-Threatening, Hospitalization)
  Sender: FDA-Public Use
  Company Number: FR-B.I. PHARMACEUTICALS,INC./RIDGEFIELD-2011-FF-00103FF

PATIENT
  Age: 52 Year
  Sex: Female

DRUGS (3)
  1. SIFROL [Suspect]
     Dosage: 0.7 MG
     Route: 048
  2. SIFROL [Suspect]
     Indication: RESTLESS LEGS SYNDROME
     Dosage: 0.35 MG
     Route: 048
  3. SIFROL [Suspect]
     Dosage: 1.4 MG
     Route: 048
     Dates: start: 20091201

REACTIONS (2)
  - PATHOLOGICAL GAMBLING [None]
  - SUICIDE ATTEMPT [None]
